FAERS Safety Report 7361162-X (Version None)
Quarter: 2011Q1

REPORT INFORMATION
  Report Type: 
  Country: None (occurrence: None)
  Receive Date: 20110315
  Receipt Date: 20110315
  Transmission Date: 20110831
  Serious: Yes (Other)
  Sender: FDA-Public Use
  Company Number: None

PATIENT
  Age: 43 Year
  Sex: Female
  Weight: 62.1428 kg

DRUGS (2)
  1. SYNTHROID [Suspect]
     Indication: HYPOTHYROIDISM
     Dosage: 1 TABLET DAILY PO
     Route: 048
     Dates: start: 20071001, end: 20110314
  2. SYNTHROID [Suspect]
     Indication: HYPERTHYROIDISM
     Dosage: 1 TABLET DAILY PO
     Route: 048
     Dates: start: 20071001, end: 20110314

REACTIONS (11)
  - LETHARGY [None]
  - WEIGHT INCREASED [None]
  - SURGERY [None]
  - HYPOTHYROIDISM [None]
  - PRODUCT QUALITY ISSUE [None]
  - VISION BLURRED [None]
  - INFECTIOUS MONONUCLEOSIS [None]
  - BLOOD THYROID STIMULATING HORMONE ABNORMAL [None]
  - HYSTERECTOMY [None]
  - HEADACHE [None]
  - PARVOVIRUS INFECTION [None]
